FAERS Safety Report 25907517 (Version 1)
Quarter: 2025Q4

REPORT INFORMATION
  Report Type: Spontaneous
  Country: US (occurrence: US)
  Receive Date: 20251010
  Receipt Date: 20251010
  Transmission Date: 20260118
  Serious: Yes (Hospitalization, Other)
  Sender: RANBAXY
  Company Number: US-SUN PHARMACEUTICAL INDUSTRIES LTD-2025R1-530651

PATIENT
  Age: 20 Year
  Sex: Female

DRUGS (6)
  1. AMOXICILLIN [Suspect]
     Active Substance: AMOXICILLIN
     Indication: Sinusitis
     Dosage: UNK
     Route: 065
  2. PREDNISONE [Suspect]
     Active Substance: PREDNISONE
     Indication: Bell^s palsy
     Dosage: 50 MILLIGRAM, DAILY
     Route: 065
  3. VALACYCLOVIR [Suspect]
     Active Substance: VALACYCLOVIR HYDROCHLORIDE
     Indication: Bell^s palsy
     Dosage: 1000 MILLIGRAM, TID
     Route: 065
  4. PREGABALIN [Suspect]
     Active Substance: PREGABALIN
     Indication: Migraine
     Dosage: UNK
     Route: 065
  5. ENOXAPARIN SODIUM [Suspect]
     Active Substance: ENOXAPARIN SODIUM
     Indication: Embolism venous
     Dosage: 40 MILLIGRAM, DAILY
     Route: 065
  6. HUMAN IMMUNOGLOBULIN G [Suspect]
     Active Substance: HUMAN IMMUNOGLOBULIN G
     Indication: Thrombosis prophylaxis
     Dosage: 130 G (2 G/KG)
     Route: 042

REACTIONS (4)
  - Exposure during pregnancy [Unknown]
  - HELLP syndrome [Unknown]
  - Condition aggravated [Unknown]
  - Live birth [Unknown]
